FAERS Safety Report 6935068-1 (Version None)
Quarter: 2010Q3

REPORT INFORMATION
  Report Type: 
  Country: None (occurrence: None)
  Receive Date: 20100822
  Receipt Date: 20100811
  Transmission Date: 20110219
  Serious: Yes (Hospitalization)
  Sender: FDA-Public Use
  Company Number: PHHY2010IT48194

PATIENT
  Sex: Female

DRUGS (2)
  1. TEGRETOL [Suspect]
     Indication: MANIA
     Dosage: 2 DF, QD
     Route: 048
     Dates: start: 20100322, end: 20100422
  2. DELORAZEPAM [Concomitant]
     Dosage: 15 DROPS
     Route: 048

REACTIONS (3)
  - ANXIETY [None]
  - DRY MOUTH [None]
  - SENSATION OF HEAVINESS [None]
